FAERS Safety Report 7965159 (Version 2)
Quarter: 2013Q1

REPORT INFORMATION
  Report Type: Report from Study
  Country: CZ (occurrence: CZ)
  Receive Date: 20110527
  Receipt Date: 20130215
  Transmission Date: 20140127
  Serious: Yes (Hospitalization)
  Sender: FDA-Public Use
  Company Number: CZ-UCBSA-032871

PATIENT
  Age: 31 Year
  Sex: Female
  Weight: 52 kg

DRUGS (1)
  1. CERTOLIZUMAB PEGOL [Suspect]
     Indication: SPONDYLITIS
     Dosage: NUMMBER OF DOSES RECEIVED:12 INJECTIONS
     Route: 058
     Dates: start: 20101019, end: 20110111

REACTIONS (2)
  - Laryngitis [Recovered/Resolved]
  - Lymphadenopathy [Recovered/Resolved]
